FAERS Safety Report 9730878 (Version 1)
Quarter: 2013Q4

REPORT INFORMATION
  Report Type: Spontaneous
  Country: GB (occurrence: GB)
  Receive Date: 20131205
  Receipt Date: 20131205
  Transmission Date: 20140711
  Serious: Yes (Other)
  Sender: FDA-Public Use
  Company Number: GB-B.I. PHARMACEUTICALS,INC./RIDGEFIELD-2013-BI-40340YA

PATIENT
  Age: 60 Year
  Sex: Male

DRUGS (2)
  1. TAMSULOSINA [Suspect]
     Indication: LOWER URINARY TRACT SYMPTOMS
     Route: 065
  2. TAMSULOSINA [Suspect]
     Indication: BENIGN PROSTATIC HYPERPLASIA

REACTIONS (5)
  - Prostatic operation [Unknown]
  - Urinary hesitation [Unknown]
  - Urinary incontinence [Unknown]
  - Dysuria [Unknown]
  - Drug ineffective [Unknown]
